FAERS Safety Report 8482791-6 (Version None)
Quarter: 2012Q3

REPORT INFORMATION
  Report Type: 
  Country: None (occurrence: None)
  Receive Date: 20120702
  Receipt Date: 20120628
  Transmission Date: 20120928
  Serious: Yes (Death, Hospitalization)
  Sender: FDA-Public Use
  Company Number: PHHY2012NL036101

PATIENT
  Age: 71 Year
  Sex: Male

DRUGS (2)
  1. ISONIAZID [Concomitant]
     Indication: TUBERCULOSIS
  2. PREDNISONE [Suspect]
     Indication: ARTHRITIS

REACTIONS (11)
  - ENCEPHALOPATHY [None]
  - HEPATIC FAILURE [None]
  - GENERAL PHYSICAL HEALTH DETERIORATION [None]
  - HEPATIC CIRRHOSIS [None]
  - LACTIC ACIDOSIS [None]
  - MALAISE [None]
  - HEPATITIS B [None]
  - HEPATORENAL SYNDROME [None]
  - WEIGHT DECREASED [None]
  - ASCITES [None]
  - HYPERBILIRUBINAEMIA [None]
